FAERS Safety Report 14688153 (Version 2)
Quarter: 2018Q2

REPORT INFORMATION
  Report Type: Spontaneous
  Country: US (occurrence: US)
  Receive Date: 20180328
  Receipt Date: 20180404
  Transmission Date: 20180711
  Serious: No
  Sender: FDA-Public Use
  Company Number: US-PFIZER INC-2018081092

PATIENT
  Age: 63 Year
  Sex: Female
  Weight: 68 kg

DRUGS (12)
  1. METHOCARBAMOL. [Concomitant]
     Active Substance: METHOCARBAMOL
     Indication: MUSCLE SPASMS
  2. ENBREL [Suspect]
     Active Substance: ETANERCEPT
     Indication: OSTEOARTHRITIS
  3. TRAMADOL. [Concomitant]
     Active Substance: TRAMADOL
     Indication: PAIN
     Dosage: 50 MG, AS NEEDED  (EVERY 8 HOURS AS NEEDED)
     Route: 048
  4. ENBREL [Suspect]
     Active Substance: ETANERCEPT
     Indication: ARTHRITIS
     Dosage: 50 MG, WEEKLY
     Route: 058
     Dates: start: 201801, end: 2018
  5. METHOCARBAMOL. [Concomitant]
     Active Substance: METHOCARBAMOL
     Indication: SLEEP DISORDER
     Dosage: 750 MG, 1X/DAY (ONE AT NIGHT)
     Route: 048
     Dates: start: 201708
  6. FORTEO [Concomitant]
     Active Substance: TERIPARATIDE
     Indication: BONE DISORDER
     Dosage: 20 MG, 1X/DAY
     Route: 058
     Dates: start: 201801
  7. TYLENOL [Concomitant]
     Active Substance: ACETAMINOPHEN
     Indication: PAIN
     Dosage: 1300 MG, AS NEEDED  (2 TABLETS BY MOUTH AS NEEDED)
     Route: 048
  8. VITAMIN D [Concomitant]
     Active Substance: CHOLECALCIFEROL
     Indication: VITAMIN D DECREASED
     Dosage: UNK, WEEKLY (50000 1 CAPSULE EVERY FRIDAY)
     Dates: start: 201802
  9. PREDNISONE. [Concomitant]
     Active Substance: PREDNISONE
     Indication: CONDITION AGGRAVATED
     Dosage: 5 MG, 1X/DAY
     Route: 048
  10. DICLOFENAC SODIUM. [Concomitant]
     Active Substance: DICLOFENAC SODIUM
     Indication: PAIN
     Dosage: 75 MG, 2X/DAY(1 TABLET BY MOUTH TWICE A DAY)
     Route: 048
     Dates: start: 20180115
  11. ENBREL [Suspect]
     Active Substance: ETANERCEPT
     Indication: RHEUMATOID ARTHRITIS
  12. XELJANZ XR [Suspect]
     Active Substance: TOFACITINIB CITRATE
     Indication: ARTHRITIS
     Dosage: 11 MG, 1X/DAY
     Route: 048
     Dates: start: 201803

REACTIONS (16)
  - Feeling abnormal [Unknown]
  - Erythema [Recovered/Resolved]
  - Ocular hyperaemia [Recovered/Resolved]
  - Eye pruritus [Unknown]
  - Peripheral swelling [Unknown]
  - Swelling face [Recovered/Resolved]
  - Pain in extremity [Unknown]
  - Hypersensitivity [Recovered/Resolved]
  - Feeling hot [Recovered/Resolved]
  - Injection site erythema [Unknown]
  - Burning sensation [Recovered/Resolved]
  - Body height decreased [Unknown]
  - Injection site bruising [Unknown]
  - Pruritus generalised [Recovered/Resolved]
  - Eye swelling [Recovered/Resolved]
  - Injection site swelling [Unknown]

NARRATIVE: CASE EVENT DATE: 201802
